FAERS Safety Report 21665056 (Version 1)
Quarter: 2022Q4

REPORT INFORMATION
  Report Type: Spontaneous
  Country: BR (occurrence: BR)
  Receive Date: 20221130
  Receipt Date: 20221130
  Transmission Date: 20230113
  Serious: Yes (Death, Other)
  Sender: FDA-Public Use
  Company Number: BR-ABBOTT-2022A-1356183

PATIENT
  Age: 67 Year
  Sex: Male
  Weight: 84 kg

DRUGS (1)
  1. DEPAKOTE ER [Suspect]
     Active Substance: DIVALPROEX SODIUM
     Indication: Seizure
     Dosage: TIME INTERVAL: 0.33333333 DAYS: 500MG AND 250MG AT MORNING, 500MG AT AFTERNOON, AND AT NIGHT 750M...
     Route: 048

REACTIONS (14)
  - Pneumonitis [Fatal]
  - Pneumonia [Unknown]
  - Fall [Unknown]
  - Product use issue [Unknown]
  - Balance disorder [Unknown]
  - Parkinsonism [Unknown]
  - Aspiration [Unknown]
  - Cerebellar atrophy [Unknown]
  - Feeding disorder [Unknown]
  - Choking [Unknown]
  - Illness [Unknown]
  - Dysphagia [Unknown]
  - Mobility decreased [Unknown]
  - Respiratory failure [Unknown]
